FAERS Safety Report 4560114-2 (Version None)
Quarter: 2005Q1

REPORT INFORMATION
  Report Type: 
  Country: None (occurrence: None)
  Receive Date: 20050120
  Receipt Date: 20050120
  Transmission Date: 20050727
  Serious: Yes (Other)
  Sender: FDA-Public Use
  Company Number: None

PATIENT
  Age: 65 Year
  Sex: Female

DRUGS (2)
  1. DILANTIN [Suspect]
     Indication: CONVULSION
     Dosage: 100 MG 1 QAM 1 AT NOON  ; 2 AT HS
     Dates: start: 20040520
  2. DILANTIN [Suspect]
     Indication: CONVULSION
     Dosage: 100 MG 1 QAM 1 AT NOON  ; 2 AT HS
     Dates: start: 20040521

REACTIONS (2)
  - CONVULSION [None]
  - PHARMACEUTICAL PRODUCT COMPLAINT [None]
